FAERS Safety Report 16158842 (Version 2)
Quarter: 2019Q2

REPORT INFORMATION
  Report Type: Spontaneous
  Country: US (occurrence: US)
  Receive Date: 20190404
  Receipt Date: 20190606
  Transmission Date: 20190711
  Serious: Yes (Other)
  Sender: FDA-Public Use
  Company Number: US-009507513-1904USA000701

PATIENT
  Age: 25 Year
  Sex: Female
  Weight: 99.77 kg

DRUGS (1)
  1. NEXPLANON [Suspect]
     Active Substance: ETONOGESTREL
     Indication: CONTRACEPTION
     Dosage: 68 MILLIGRAM, 1 IMPLANT
     Route: 059
     Dates: start: 20170308

REACTIONS (6)
  - Menstruation irregular [Unknown]
  - Premenstrual syndrome [Unknown]
  - Mood swings [Unknown]
  - Metrorrhagia [Unknown]
  - Menstruation normal [Unknown]
  - Dysmenorrhoea [Unknown]

NARRATIVE: CASE EVENT DATE: 20190309
